FAERS Safety Report 9098279 (Version 1)
Quarter: 2013Q1

REPORT INFORMATION
  Report Type: Report from Study
  Country: JP (occurrence: JP)
  Receive Date: 20130213
  Receipt Date: 20130213
  Transmission Date: 20140127
  Serious: Yes (Hospitalization)
  Sender: FDA-Public Use
  Company Number: JP-AMGEN-JPNSP2012068429

PATIENT
  Sex: 0

DRUGS (4)
  1. ROMIPLOSTIM [Suspect]
     Indication: IDIOPATHIC THROMBOCYTOPENIC PURPURA
     Dosage: UNK
     Dates: start: 20120628
  2. FLUOROURACIL [Concomitant]
     Indication: COLON CANCER
     Route: 041
  3. LEVOFOLINATE CALCIUM [Concomitant]
     Indication: COLON CANCER
     Dosage: UNK
     Route: 041
  4. OXALIPLATIN [Concomitant]
     Indication: COLON CANCER
     Dosage: UNK
     Route: 041

REACTIONS (1)
  - Venous thrombosis [Unknown]
